FAERS Safety Report 18357748 (Version 3)
Quarter: 2020Q4

REPORT INFORMATION
  Report Type: Spontaneous
  Country: CA (occurrence: CA)
  Receive Date: 20201008
  Receipt Date: 20201215
  Transmission Date: 20210114
  Serious: Yes (Other)
  Sender: FDA-Public Use
  Company Number: CA-CELLTRION INC.-2020CA019084

PATIENT

DRUGS (12)
  1. INFLECTRA [Suspect]
     Active Substance: INFLIXIMAB-DYYB
     Indication: COLITIS ULCERATIVE
     Dosage: 400 MG EVERY 5 WEEKS
     Route: 042
     Dates: start: 20200311, end: 20200727
  2. INFLECTRA [Suspect]
     Active Substance: INFLIXIMAB-DYYB
     Dosage: 400 MG EVERY 5 WEEKS
     Route: 042
     Dates: start: 20200414
  3. INFLECTRA [Suspect]
     Active Substance: INFLIXIMAB-DYYB
     Dosage: 400 MG EVERY 5 WEEKS
     Route: 042
     Dates: start: 20200727, end: 20200727
  4. INFLECTRA [Suspect]
     Active Substance: INFLIXIMAB-DYYB
     Dosage: 400 MG EVERY 5 WEEKS
     Route: 042
     Dates: start: 20200622
  5. HYDROCORTISONE. [Concomitant]
     Active Substance: HYDROCORTISONE
     Dosage: 100 MG
     Dates: start: 20200622, end: 20200622
  6. INFLECTRA [Suspect]
     Active Substance: INFLIXIMAB-DYYB
     Dosage: 400 MG EVERY 5 WEEKS
     Route: 042
     Dates: start: 20200519
  7. INFLECTRA [Suspect]
     Active Substance: INFLIXIMAB-DYYB
     Dosage: 400 MG EVERY 5 WEEKS
     Route: 042
     Dates: start: 20200727, end: 20200727
  8. HYDROCORTISONE. [Concomitant]
     Active Substance: HYDROCORTISONE
     Dosage: 100 MG
     Dates: start: 20200727, end: 20200727
  9. RAMIPRIL. [Concomitant]
     Active Substance: RAMIPRIL
     Dosage: UNK
     Route: 065
  10. INFLECTRA [Suspect]
     Active Substance: INFLIXIMAB-DYYB
     Dosage: 400MG EVERY 5 WEEKS
     Route: 042
     Dates: start: 20200622
  11. HYDROCORTISONE. [Concomitant]
     Active Substance: HYDROCORTISONE
     Indication: PREMEDICATION
     Dosage: 100 MG
     Route: 042
     Dates: start: 20200519, end: 20200519
  12. INFLECTRA [Suspect]
     Active Substance: INFLIXIMAB-DYYB
     Dosage: 400MG EVERY 5 WEEKS
     Route: 042
     Dates: start: 20200622

REACTIONS (14)
  - Urticaria [Not Recovered/Not Resolved]
  - Rash [Not Recovered/Not Resolved]
  - Intentional product use issue [Unknown]
  - Off label use [Unknown]
  - Bacterial infection [Not Recovered/Not Resolved]
  - Rash erythematous [Not Recovered/Not Resolved]
  - Off label use [Unknown]
  - Staphylococcal infection [Not Recovered/Not Resolved]
  - Pruritus [Unknown]
  - Heart rate decreased [Unknown]
  - Crying [Unknown]
  - Blood pressure increased [Unknown]
  - Condition aggravated [Unknown]
  - Fungal infection [Unknown]

NARRATIVE: CASE EVENT DATE: 20200311
